FAERS Safety Report 9009260 (Version 2)
Quarter: 2013Q2

REPORT INFORMATION
  Report Type: Spontaneous
  Country: US (occurrence: US)
  Receive Date: 20130111
  Receipt Date: 20130607
  Transmission Date: 20140414
  Serious: Yes (Death, Hospitalization)
  Sender: FDA-Public Use
  Company Number: US-GLAXOSMITHKLINE-A0915128A

PATIENT
  Age: 70 Year
  Sex: Female
  Weight: 73.2 kg

DRUGS (3)
  1. MELPHALAN [Suspect]
     Indication: PLASMA CELL MYELOMA
     Dosage: 8MG CYCLIC
     Route: 048
     Dates: start: 20101018, end: 20101028
  2. VELCADE [Suspect]
     Indication: PLASMA CELL MYELOMA
     Dosage: 2.3MG TWO TIMES PER WEEK
     Route: 042
     Dates: start: 20101018, end: 20101028
  3. PREDNISONE [Suspect]
     Indication: PLASMA CELL MYELOMA
     Dosage: 100MG CYCLIC
     Route: 048
     Dates: start: 20101018, end: 20101028

REACTIONS (21)
  - Rectal haemorrhage [Recovered/Resolved]
  - Gastrointestinal haemorrhage [Recovered/Resolved]
  - Septic shock [Unknown]
  - Staphylococcal sepsis [Fatal]
  - Respiratory failure [Fatal]
  - Device related sepsis [Fatal]
  - Lethargy [Unknown]
  - Fatigue [Unknown]
  - Hypotension [Unknown]
  - Haemorrhoidal haemorrhage [Unknown]
  - Mental status changes [Unknown]
  - Intervertebral disc disorder [Fatal]
  - Staphylococcal bacteraemia [Unknown]
  - Anaemia [Unknown]
  - Thrombocytopenia [Unknown]
  - Pyrexia [Unknown]
  - Pain [Unknown]
  - Hiatus hernia [Unknown]
  - Gastric disorder [Unknown]
  - Haemorrhoids [Unknown]
  - Diverticulum [Unknown]
